FAERS Safety Report 5982604-8 (Version None)
Quarter: 2008Q4

REPORT INFORMATION
  Report Type: 
  Country: None (occurrence: None)
  Receive Date: 20081208
  Receipt Date: 20081128
  Transmission Date: 20090506
  Serious: Yes (Other)
  Sender: FDA-Public Use
  Company Number: PHHY2008JP30217

PATIENT
  Sex: Male

DRUGS (5)
  1. DIOVAN [Suspect]
     Indication: HYPERTENSION
     Dosage: 20 MG, QD
     Route: 048
     Dates: start: 20081001
  2. DIOVAN [Suspect]
     Indication: PROTEINURIA
  3. AMLODIN [Concomitant]
     Dosage: 5 MG
     Route: 048
  4. SELOKEN [Concomitant]
     Dosage: 20 MG
     Route: 048
  5. QUINAPRIL HCL [Concomitant]
     Dosage: 10 MG
     Route: 048

REACTIONS (1)
  - BRADYCARDIA [None]
